FAERS Safety Report 6497240-7 (Version None)
Quarter: 2009Q4

REPORT INFORMATION
  Report Type: 
  Country: None (occurrence: None)
  Receive Date: 20091215
  Receipt Date: 20090706
  Transmission Date: 20100525
  Serious: No
  Sender: FDA-Public Use
  Company Number: A0796747A

PATIENT
  Sex: Male

DRUGS (1)
  1. AVODART [Suspect]
     Indication: DRUG USE FOR UNKNOWN INDICATION

REACTIONS (3)
  - EJACULATION DISORDER [None]
  - EJACULATION FAILURE [None]
  - SEMEN VOLUME DECREASED [None]
